FAERS Safety Report 25700804 (Version 1)
Quarter: 2025Q3

REPORT INFORMATION
  Report Type: Spontaneous
  Country: US (occurrence: US)
  Receive Date: 20250819
  Receipt Date: 20250819
  Transmission Date: 20251020
  Serious: No
  Sender: SANOFI AVENTIS
  Company Number: US-SA-2025SA245633

PATIENT
  Age: 76 Year
  Sex: Female

DRUGS (8)
  1. DUPIXENT [Suspect]
     Active Substance: DUPILUMAB
     Indication: Nasal polyps
     Dosage: 300 MG, QOW
     Route: 058
     Dates: start: 20250716
  2. FLUTICASONE PROPIONATE [Concomitant]
     Active Substance: FLUTICASONE PROPIONATE
  3. PUMPKIN SEED OIL [Concomitant]
     Active Substance: PUMPKIN SEED OIL
  4. MAGNESIUM [Concomitant]
     Active Substance: MAGNESIUM
  5. ALBUTEROL [Concomitant]
     Active Substance: ALBUTEROL
  6. BUDESONIDE [Concomitant]
     Active Substance: BUDESONIDE
  7. SALINE [Concomitant]
     Active Substance: SODIUM CHLORIDE
  8. POTASSIUM [Concomitant]
     Active Substance: POTASSIUM

REACTIONS (1)
  - Eye pruritus [Recovered/Resolved]

NARRATIVE: CASE EVENT DATE: 20250730
